FAERS Safety Report 8621512-0 (Version None)
Quarter: 2012Q3

REPORT INFORMATION
  Report Type: 
  Country: None (occurrence: None)
  Receive Date: 20120824
  Receipt Date: 20120810
  Transmission Date: 20120928
  Serious: No
  Sender: FDA-Public Use
  Company Number: US-ASTRAZENECA-2011SE36426

PATIENT
  Age: 60 Year
  Sex: Female
  Weight: 64.9 kg

DRUGS (26)
  1. NEXIUM [Suspect]
     Route: 048
  2. UNSPECIFIED ANTIBIOTICS [Concomitant]
  3. POTASSIUM CHLORIDE (KV/24) [Concomitant]
  4. CEFTIN [Concomitant]
  5. PHENERGAN HCL [Concomitant]
  6. XANAX [Concomitant]
  7. LISINOPRIL [Suspect]
     Route: 048
  8. ALBUTEROL [Concomitant]
  9. CHOLESTYRAMINE [Concomitant]
  10. LEVAQUIN [Concomitant]
  11. LORTAB [Concomitant]
  12. VERMOX [Concomitant]
  13. CARVEDILOL [Concomitant]
  14. LOVENOX [Concomitant]
  15. AZITHROMYCIN [Concomitant]
  16. CLONIDINE [Concomitant]
  17. CYMBALTA [Concomitant]
  18. MEPRON [Concomitant]
  19. SOMA [Concomitant]
  20. CLEOCIN HYDROCHLORIDE [Concomitant]
  21. FUROSEMIDE [Concomitant]
  22. MAALOX THERAPEUTIC CONCENTRATE [Concomitant]
  23. VITAMIN D [Concomitant]
  24. CRESTOR [Suspect]
     Route: 048
  25. ESOMEPRAZOLE SODIUM [Concomitant]
  26. HYDRALAZINE HCL [Concomitant]

REACTIONS (5)
  - LYME DISEASE [None]
  - GASTRITIS [None]
  - ABDOMINAL PAIN UPPER [None]
  - GASTROOESOPHAGEAL REFLUX DISEASE [None]
  - DRUG DOSE OMISSION [None]
